FAERS Safety Report 6408230-4 (Version None)
Quarter: 2009Q4

REPORT INFORMATION
  Report Type: 
  Country: None (occurrence: None)
  Receive Date: 20091021
  Receipt Date: 20091008
  Transmission Date: 20100525
  Serious: Yes (Hospitalization, Other)
  Sender: FDA-Public Use
  Company Number: BR-PFIZER INC-2009270548

PATIENT
  Age: 52 Year

DRUGS (8)
  1. XALATAN [Suspect]
     Indication: GLAUCOMA
     Dosage: UNK
     Route: 047
     Dates: start: 19970101
  2. RIVOTRIL [Concomitant]
     Dosage: UNK
  3. RYTMONORM [Concomitant]
     Dosage: UNK
  4. SELOZOK [Concomitant]
     Dosage: UNK
  5. VYTORIN [Concomitant]
     Dosage: UNK
  6. SIBUTRAMINE [Concomitant]
     Dosage: UNK
  7. AMITRIPTYLINE [Concomitant]
     Dosage: UNK
  8. OMEPRAZOLE [Concomitant]
     Dosage: UNK

REACTIONS (14)
  - CARDIOVASCULAR DISORDER [None]
  - DECREASED APPETITE [None]
  - DIARRHOEA [None]
  - GLAUCOMA [None]
  - HEPATIC STEATOSIS [None]
  - HEPATOMEGALY [None]
  - MALAISE [None]
  - MIGRAINE [None]
  - MOVEMENT DISORDER [None]
  - PAIN [None]
  - SPEECH DISORDER [None]
  - SWELLING [None]
  - WEIGHT INCREASED [None]
  - WOLFF-PARKINSON-WHITE SYNDROME [None]
